FAERS Safety Report 5360686-4 (Version None)
Quarter: 2007Q2

REPORT INFORMATION
  Report Type: 
  Country: None (occurrence: None)
  Receive Date: 20070618
  Receipt Date: 20070606
  Transmission Date: 20071010
  Serious: Yes (Hospitalization, Disabling)
  Sender: FDA-Public Use
  Company Number: GR-ROCHE-496632

PATIENT
  Sex: Female

DRUGS (18)
  1. BONIVA [Suspect]
     Indication: OSTEOPOROSIS
     Dosage: TABLETS REPORTED AS ^F.C. TABS^.
     Route: 048
     Dates: start: 20061015, end: 20070505
  2. FOSAMAX [Suspect]
     Indication: DRUG USE FOR UNKNOWN INDICATION
     Route: 065
     Dates: start: 20010101, end: 20061015
  3. MEDROL [Concomitant]
     Dates: start: 19970101
  4. IDEOS [Concomitant]
  5. ARAVA [Concomitant]
     Dates: start: 20050101
  6. METHOTREXATE [Concomitant]
  7. KINERET [Concomitant]
  8. NEORECORMON [Concomitant]
  9. FRUMIL [Concomitant]
  10. TRACLEER [Concomitant]
  11. ZURCAZOL [Concomitant]
  12. VIAGRA [Concomitant]
  13. ISOPTIN [Concomitant]
  14. PROPAFENONE HYDROCHLORIDE [Concomitant]
  15. FILICINE [Concomitant]
  16. DIGOXIN [Concomitant]
  17. BEGALIN [Concomitant]
  18. FLAGYL [Concomitant]

REACTIONS (1)
  - OSTEONECROSIS [None]
